FAERS Safety Report 10032337 (Version 1)
Quarter: 2014Q1

REPORT INFORMATION
  Report Type: Report from Study
  Country: HU (occurrence: HU)
  Receive Date: 20140324
  Receipt Date: 20140324
  Transmission Date: 20141002
  Serious: No
  Sender: FDA-Public Use
  Company Number: HU-UCBSA-114696

PATIENT
  Age: 66 Year
  Sex: Female
  Weight: 47 kg

DRUGS (3)
  1. VIMPAT [Suspect]
     Indication: EPILEPSY
     Route: 048
     Dates: start: 20130602, end: 20130702
  2. LAMOTRIGINE [Concomitant]
     Indication: EPILEPSY
     Route: 048
  3. CARBAMAZEPINE [Concomitant]
     Indication: EPILEPSY
     Route: 048

REACTIONS (2)
  - Loss of consciousness [Recovered/Resolved]
  - Vertigo [Recovered/Resolved]
